FAERS Safety Report 4869299-1 (Version None)
Quarter: 2005Q4

REPORT INFORMATION
  Report Type: 
  Country: None (occurrence: None)
  Receive Date: 20051230
  Receipt Date: 20051222
  Transmission Date: 20060501
  Serious: Yes (Other)
  Sender: FDA-Public Use
  Company Number: PHEH2005US13788

PATIENT
  Age: 33 Year
  Sex: Female

DRUGS (4)
  1. GLEEVEC [Suspect]
     Indication: CHRONIC MYELOID LEUKAEMIA
     Dosage: 400 MG, BID
     Dates: start: 20050401
  2. TRIAMTERENE AND HYDROCHLOROTHIAZID ^HARRIS^ [Concomitant]
  3. LANTUS [Concomitant]
     Indication: DIABETES MELLITUS
  4. ADVIL [Concomitant]

REACTIONS (8)
  - BONE PAIN [None]
  - DIABETES MELLITUS INSULIN-DEPENDENT [None]
  - EYE OEDEMA [None]
  - MYALGIA [None]
  - NAUSEA [None]
  - OEDEMA PERIPHERAL [None]
  - VOMITING [None]
  - WHITE BLOOD CELL COUNT ABNORMAL [None]
